FAERS Safety Report 24863025 (Version 1)
Quarter: 2025Q1

REPORT INFORMATION
  Report Type: Spontaneous
  Country: AU (occurrence: AU)
  Receive Date: 20250120
  Receipt Date: 20250120
  Transmission Date: 20250409
  Serious: Yes (Other)
  Sender: JOHNSON AND JOHNSON
  Company Number: AU-JNJFOC-20250114319

PATIENT
  Sex: Male

DRUGS (1)
  1. SPORANOX [Suspect]
     Active Substance: ITRACONAZOLE
     Indication: Eczema
     Route: 065
     Dates: start: 20241014

REACTIONS (23)
  - Hallucination, auditory [Unknown]
  - Hallucination, visual [Unknown]
  - Pancreatitis [Unknown]
  - Weight decreased [Unknown]
  - Threat of redundancy [Unknown]
  - Sleep disorder [Unknown]
  - Skin exfoliation [Unknown]
  - Self-injurious ideation [Unknown]
  - Rash [Not Recovered/Not Resolved]
  - Mood swings [Unknown]
  - Loss of libido [Unknown]
  - Lipase increased [Unknown]
  - Irritability [Unknown]
  - Intrusive thoughts [Unknown]
  - Insomnia [Unknown]
  - Fatigue [Not Recovered/Not Resolved]
  - Eyelid rash [Unknown]
  - Eye irritation [Unknown]
  - Divorced [Unknown]
  - Decreased appetite [Not Recovered/Not Resolved]
  - Agitation [Unknown]
  - Aggression [Unknown]
  - Abdominal pain [Unknown]
